FAERS Safety Report 6611805-0 (Version None)
Quarter: 2010Q1

REPORT INFORMATION
  Report Type: 
  Country: None (occurrence: None)
  Receive Date: 20100301
  Receipt Date: 20100301
  Transmission Date: 20100710
  Serious: Yes (Hospitalization)
  Sender: FDA-Public Use
  Company Number: None

PATIENT
  Age: 77 Year
  Sex: Female
  Weight: 44.9061 kg

DRUGS (1)
  1. SEROQUEL [Suspect]
     Indication: DEMENTIA
     Dosage: 1 TABLET BEDTIME
     Dates: start: 20100223, end: 20100223

REACTIONS (6)
  - AGGRESSION [None]
  - BLOOD PRESSURE INCREASED [None]
  - CONDITION AGGRAVATED [None]
  - DEMENTIA [None]
  - NO THERAPEUTIC RESPONSE [None]
  - SUICIDAL BEHAVIOUR [None]
